FAERS Safety Report 6185776-8 (Version None)
Quarter: 2009Q2

REPORT INFORMATION
  Report Type: 
  Country: None (occurrence: None)
  Receive Date: 20090511
  Receipt Date: 20090430
  Transmission Date: 20091009
  Serious: Yes (Other)
  Sender: FDA-Public Use
  Company Number: US-KINGPHARMUSA00001-K200900346

PATIENT
  Age: 82 Year
  Sex: Female

DRUGS (10)
  1. ALTACE [Suspect]
     Indication: HYPERTENSION
     Dosage: 5 MG, QD
     Route: 048
     Dates: start: 20081105
  2. FELODIPINE [Suspect]
     Indication: HYPERTENSION
     Dosage: 5 MG, QD
     Route: 048
     Dates: start: 20081105, end: 20090126
  3. LYRICA [Concomitant]
     Indication: NEURALGIA
     Dosage: 100 MG, UNK
     Route: 048
  4. ELTROXIN [Concomitant]
     Indication: HYPOTHYROIDISM
     Dosage: 125 UG, UNK
     Route: 048
  5. LIPITOR [Concomitant]
     Indication: BLOOD CHOLESTEROL INCREASED
     Dosage: 20 MG, UNK
     Route: 048
  6. ASPIRIN [Concomitant]
     Dosage: 75 MG, UNK
     Route: 048
  7. METOPROLOL [Concomitant]
     Route: 048
  8. NEXIUM [Concomitant]
     Indication: GASTRITIS
     Dosage: 20 MG, UNK
     Route: 048
  9. FERROUS GLUCONATE [Concomitant]
     Dosage: 600 MG, UNK
     Route: 048
  10. VESITIRIM [Concomitant]
     Indication: INCONTINENCE
     Dosage: 5 MG, UNK
     Route: 048

REACTIONS (5)
  - CARDIAC FAILURE CONGESTIVE [None]
  - CREPITATIONS [None]
  - DYSPNOEA [None]
  - OEDEMA PERIPHERAL [None]
  - PULMONARY OEDEMA [None]
